FAERS Safety Report 5393725-5 (Version None)
Quarter: 2007Q3

REPORT INFORMATION
  Report Type: 
  Country: None (occurrence: None)
  Receive Date: 20070723
  Receipt Date: 20070716
  Transmission Date: 20080115
  Serious: Yes (Other)
  Sender: FDA-Public Use
  Company Number: US-BAYER-200712301BWH

PATIENT
  Age: 69 Year
  Sex: Male
  Weight: 58 kg

DRUGS (1)
  1. NEXAVAR [Suspect]
     Indication: RENAL CELL CARCINOMA STAGE UNSPECIFIED
     Dosage: TOTAL DAILY DOSE: 800 MG  UNIT DOSE: 200 MG
     Route: 048
     Dates: start: 20070709

REACTIONS (6)
  - ANOREXIA [None]
  - CONSTIPATION [None]
  - INSOMNIA [None]
  - NEOPLASM PROGRESSION [None]
  - PRURITUS [None]
  - TUMOUR PAIN [None]
